FAERS Safety Report 21468068 (Version 1)
Quarter: 2022Q4

REPORT INFORMATION
  Report Type: Spontaneous
  Country: US (occurrence: US)
  Receive Date: 20221017
  Receipt Date: 20221017
  Transmission Date: 20230112
  Serious: No
  Sender: FDA-Public Use
  Company Number: US-ALLERGAN-2206605US

PATIENT
  Age: 67 Year
  Sex: Female

DRUGS (3)
  1. LINZESS [Suspect]
     Active Substance: LINACLOTIDE
     Indication: Constipation
     Dosage: 30 MINUTES PRIOR TO EATING EVERY MORING
  2. HYDROCODONE [Concomitant]
     Active Substance: HYDROCODONE
     Indication: Arthritis
  3. Unspecified injections [Concomitant]
     Indication: Arthritis

REACTIONS (2)
  - Diverticulitis [Not Recovered/Not Resolved]
  - Faeces discoloured [Unknown]
